FAERS Safety Report 14754824 (Version 6)
Quarter: 2019Q1

REPORT INFORMATION
  Report Type: Spontaneous
  Country: US (occurrence: US)
  Receive Date: 20180413
  Receipt Date: 20190328
  Transmission Date: 20190417
  Serious: No
  Sender: FDA-Public Use
  Company Number: US-009507513-1804USA005103

PATIENT
  Age: 14 Year
  Sex: Female

DRUGS (3)
  1. ASMANEX [Suspect]
     Active Substance: MOMETASONE FUROATE
     Dosage: ONE PUFF ONCE DAILY (ROUTE: ORAL INHALATION)
  2. ASMANEX [Suspect]
     Active Substance: MOMETASONE FUROATE
     Dosage: UNK (30 DOSE; ROUTE: ORAL INHALATION)
  3. ASMANEX [Suspect]
     Active Substance: MOMETASONE FUROATE
     Dosage: UNK (ROUTE: ORAL INHALATION)

REACTIONS (10)
  - Product dose omission [Unknown]
  - Poor quality device used [Unknown]
  - Product availability issue [Unknown]
  - No adverse event [Unknown]
  - Product prescribing error [Unknown]
  - Product quality issue [Unknown]
  - Product quality issue [Unknown]
  - Product quality issue [Unknown]
  - Poor quality device used [Unknown]
  - Poor quality device used [Unknown]

NARRATIVE: CASE EVENT DATE: 2018
